FAERS Safety Report 9074072 (Version 1)
Quarter: 2013Q1

REPORT INFORMATION
  Report Type: Report from Study
  Country: US (occurrence: US)
  Receive Date: 20130128
  Receipt Date: 20130128
  Transmission Date: 20140127
  Serious: No
  Sender: FDA-Public Use
  Company Number: US-ABBOTT-12P-163-0916100-00

PATIENT
  Age: 48 None
  Sex: Female
  Weight: 56.75 kg

DRUGS (1)
  1. HUMIRA 40 MG/0.8 ML PEN [Suspect]
     Indication: RHEUMATOID ARTHRITIS
     Dates: start: 20120216

REACTIONS (4)
  - Injection site pruritus [Recovering/Resolving]
  - Urticaria [Recovering/Resolving]
  - Flushing [Not Recovered/Not Resolved]
  - Injection site urticaria [Recovering/Resolving]
